FAERS Safety Report 25836894 (Version 5)
Quarter: 2025Q4

REPORT INFORMATION
  Report Type: Spontaneous
  Country: US (occurrence: US)
  Receive Date: 20250923
  Receipt Date: 20251022
  Transmission Date: 20260117
  Serious: Yes (Death, Hospitalization, Other)
  Sender: PFIZER
  Company Number: US-PFIZER INC-202500187516

PATIENT
  Age: 71 Year
  Sex: Female
  Weight: 40.816 kg

DRUGS (1)
  1. IBRANCE [Suspect]
     Active Substance: PALBOCICLIB
     Dosage: 75 MG, 1X/DAY
     Route: 048
     Dates: start: 20250913, end: 20250916

REACTIONS (2)
  - Malignant neoplasm progression [Fatal]
  - Coma [Fatal]

NARRATIVE: CASE EVENT DATE: 20250101
